FAERS Safety Report 9915856 (Version 1)
Quarter: 2014Q1

REPORT INFORMATION
  Report Type: Spontaneous
  Country: US (occurrence: None)
  Receive Date: 20140219
  Receipt Date: 20140219
  Transmission Date: 20141002
  Serious: Yes (Hospitalization)
  Sender: FDA-Public Use
  Company Number: None

PATIENT
  Age: 43 Year
  Sex: Male

DRUGS (1)
  1. ANDROGEL 1.62 % [Suspect]
     Dosage: 2 PUMPS  APPLIED TO A SURFACE, USUALLY THE SKIN
     Dates: start: 20130716, end: 20131211

REACTIONS (3)
  - Thrombosis [None]
  - Transient ischaemic attack [None]
  - International normalised ratio abnormal [None]
